FAERS Safety Report 5146175-0 (Version None)
Quarter: 2006Q4

REPORT INFORMATION
  Report Type: 
  Country: None (occurrence: None)
  Receive Date: 20061108
  Receipt Date: 20060606
  Transmission Date: 20070319
  Serious: Yes (Death, Other)
  Sender: FDA-Public Use
  Company Number: JP-AVENTIS-200611722JP

PATIENT
  Age: 67 Year
  Sex: Male
  Weight: 59 kg

DRUGS (10)
  1. TAXOTERE [Suspect]
     Indication: PROSTATE CANCER
     Route: 041
     Dates: start: 20050815, end: 20060410
  2. PREDONINE                          /00016201/ [Concomitant]
     Indication: INTERSTITIAL LUNG DISEASE
     Route: 048
     Dates: start: 20010101, end: 20060411
  3. PREDONINE                          /00016201/ [Concomitant]
     Route: 048
     Dates: start: 20010101, end: 20060411
  4. ESTRACYT [Concomitant]
     Indication: PROSTATE CANCER
     Route: 048
     Dates: start: 20030827, end: 20060411
  5. WARFARIN SODIUM [Concomitant]
     Indication: AORTIC VALVE REPLACEMENT
     Route: 048
     Dates: start: 20030314, end: 20060411
  6. SUNRYTHM [Concomitant]
     Indication: VENTRICULAR EXTRASYSTOLES
     Route: 048
     Dates: start: 20030314, end: 20060411
  7. HARNAL [Concomitant]
     Indication: BENIGN PROSTATIC HYPERPLASIA
     Route: 048
     Dates: start: 19990706, end: 20060411
  8. BUP-4 [Concomitant]
     Indication: NEUROGENIC BLADDER
     Route: 048
     Dates: start: 19990706, end: 20060411
  9. ZANTAC [Concomitant]
     Indication: GASTRIC ULCER
     Route: 048
     Dates: start: 20030314, end: 20060411
  10. DEPAS [Concomitant]
     Indication: INSOMNIA
     Route: 048
     Dates: start: 20030314, end: 20060411

REACTIONS (1)
  - INTERSTITIAL LUNG DISEASE [None]
